FAERS Safety Report 7641307-4 (Version None)
Quarter: 2011Q3

REPORT INFORMATION
  Report Type: 
  Country: None (occurrence: None)
  Receive Date: 20110728
  Receipt Date: 20110721
  Transmission Date: 20111222
  Serious: Yes (Hospitalization, Other)
  Sender: FDA-Public Use
  Company Number: US-BAYER-2010-007977

PATIENT
  Age: 38 Year
  Sex: Female
  Weight: 70.748 kg

DRUGS (3)
  1. CYMBALTA [Concomitant]
     Indication: ANXIETY
  2. PAXIL [Concomitant]
     Indication: ANXIETY
  3. YAZ [Suspect]
     Dosage: UNK
     Dates: start: 20080101, end: 20081001

REACTIONS (5)
  - CHOLECYSTITIS CHRONIC [None]
  - CHOLECYSTITIS ACUTE [None]
  - CHOLECYSTECTOMY [None]
  - PAIN [None]
  - CHOLELITHIASIS [None]
